FAERS Safety Report 14413426 (Version 5)
Quarter: 2018Q2

REPORT INFORMATION
  Report Type: Report from Study
  Country: US (occurrence: US)
  Receive Date: 20180119
  Receipt Date: 20180626
  Transmission Date: 20180711
  Serious: Yes (Hospitalization, Other)
  Sender: FDA-Public Use
  Company Number: PHEH2018US002058

PATIENT
  Age: 68 Year
  Sex: Male
  Weight: 89.6 kg

DRUGS (22)
  1. PROMACTA [Suspect]
     Active Substance: ELTROMBOPAG OLAMINE
     Indication: APLASTIC ANAEMIA
     Dosage: 3 DF, QD
     Route: 048
  2. PROAMATINE [Concomitant]
     Active Substance: MIDODRINE HYDROCHLORIDE
     Indication: PRODUCT USED FOR UNKNOWN INDICATION
     Dosage: 1 DF, TID
     Route: 048
  3. ROXICODONE [Concomitant]
     Active Substance: OXYCODONE HYDROCHLORIDE
     Indication: PRODUCT USED FOR UNKNOWN INDICATION
     Dosage: 1 DF, Q4H (AS NEEDED)
     Route: 048
  4. PERI-COLACE [Concomitant]
     Active Substance: CASANTHRANOL\DOCUSATE SODIUM
     Indication: CONSTIPATION
     Dosage: 1 DF, BID
     Route: 048
  5. ACETAMINOPHEN. [Concomitant]
     Active Substance: ACETAMINOPHEN
     Indication: PYREXIA
  6. FLEET ENEMA [Concomitant]
     Active Substance: SODIUM PHOSPHATE, DIBASIC\SODIUM PHOSPHATE, MONOBASIC
     Indication: CONSTIPATION
     Dosage: 118 ML, QD
     Route: 054
  7. MYCOSTATIN [Concomitant]
     Active Substance: NYSTATIN
     Indication: PRODUCT USED FOR UNKNOWN INDICATION
     Dosage: 4 ML, QID (SWISH ANS SPIT 400000 UNITS TOTAL)
     Route: 048
  8. DELTASONE [Concomitant]
     Active Substance: PREDNISONE
     Indication: APLASTIC ANAEMIA
     Dosage: 1 DF, QD (TAKE 2.5 MG BY MOUTH DAILY THROUGH 2/10, THEN TAKE 2.5 MG EVERY OTHER DAY THROUGH 2/20)
     Route: 048
  9. VALTREX [Concomitant]
     Active Substance: VALACYCLOVIR HYDROCHLORIDE
     Indication: PROPHYLAXIS
     Dosage: 0.5 MG, Q12H
     Route: 048
  10. ACETAMINOPHEN. [Concomitant]
     Active Substance: ACETAMINOPHEN
     Indication: PAIN
     Dosage: 2 DF, Q4H (DO NOT EXCEED 3 GRAMS IN ONE DAY)
     Route: 048
  11. CYCLOSPORIN [Concomitant]
     Active Substance: CYCLOSPORINE
     Dosage: 400 MG, BID
     Route: 065
  12. XYLOCAINE [Concomitant]
     Active Substance: LIDOCAINE HYDROCHLORIDE
     Indication: PRODUCT USED FOR UNKNOWN INDICATION
     Dosage: 40 MG/ML, TID (AS NEEDED)
     Route: 050
  13. CYCLOSPORIN [Concomitant]
     Active Substance: CYCLOSPORINE
     Indication: PRODUCT USED FOR UNKNOWN INDICATION
     Dosage: 500 MG, BID
     Route: 065
  14. SODIUM CHLORIDE. [Concomitant]
     Active Substance: SODIUM CHLORIDE
     Indication: ORAL CANDIDIASIS
     Dosage: 50 MG, QD
     Route: 042
  15. PROTONIX [Concomitant]
     Active Substance: PANTOPRAZOLE SODIUM
     Indication: GASTROOESOPHAGEAL REFLUX DISEASE
     Dosage: 1 DF, QD
     Route: 048
  16. BISCOLAX [Concomitant]
     Active Substance: BISACODYL
     Indication: CONSTIPATION
     Dosage: 1 DF, QD
     Route: 054
  17. FLUCONAZOLE. [Concomitant]
     Active Substance: FLUCONAZOLE
     Indication: MUCOSAL INFLAMMATION
     Dosage: 400 MG, QD
     Route: 042
  18. AVELOX [Concomitant]
     Active Substance: MOXIFLOXACIN HYDROCHLORIDE
     Indication: PRODUCT USED FOR UNKNOWN INDICATION
     Dosage: 400 MG, QD
     Route: 048
  19. TUBERSOL [Concomitant]
     Active Substance: TUBERCULIN PURIFIED PROTEIN DERIVATIVE
     Indication: TUBERCULOSIS
     Dosage: 0.1 ML, QD
     Route: 023
  20. NEORAL [Concomitant]
     Active Substance: CYCLOSPORINE
     Indication: APLASTIC ANAEMIA
     Dosage: 4 DF, BID
     Route: 048
  21. LACTOBACILLUS [Concomitant]
     Active Substance: LACTOBACILLUS ACIDOPHILUS
     Indication: PROBIOTIC THERAPY
     Dosage: 1 DF, BID
     Route: 048
  22. MILK OF MAGNESIA [Concomitant]
     Active Substance: MAGNESIUM HYDROXIDE
     Indication: CONSTIPATION
     Dosage: 30 ML, QD
     Route: 048

REACTIONS (38)
  - Cerebral haemorrhage [Not Recovered/Not Resolved]
  - Blood potassium decreased [Unknown]
  - Blood albumin decreased [Unknown]
  - Heart rate decreased [Unknown]
  - Aspartate aminotransferase decreased [Unknown]
  - Head injury [Unknown]
  - Thrombocytopenia [Unknown]
  - Red cell distribution width increased [Unknown]
  - Influenza [Unknown]
  - Pancytopenia [Unknown]
  - Rheumatoid arthritis [Unknown]
  - Bundle branch block right [Unknown]
  - Blood bilirubin increased [Unknown]
  - Anaemia [Unknown]
  - Brain contusion [Unknown]
  - Asthenia [Unknown]
  - Fall [Unknown]
  - Diastolic dysfunction [Unknown]
  - Blood pressure diastolic decreased [Unknown]
  - Platelet count decreased [Unknown]
  - Blood glucose increased [Unknown]
  - Candida infection [Unknown]
  - Syncope [Unknown]
  - Haematocrit decreased [Unknown]
  - Orthostatic hypotension [Recovering/Resolving]
  - Left ventricular hypertrophy [Unknown]
  - Myalgia [Unknown]
  - Red blood cell count decreased [Unknown]
  - Malnutrition [Unknown]
  - Agranulocytosis [Unknown]
  - Autonomic nervous system imbalance [Unknown]
  - Blood magnesium decreased [Unknown]
  - Blood calcium decreased [Unknown]
  - Body mass index increased [Unknown]
  - Neutrophil count decreased [Unknown]
  - Lymphocyte count decreased [Unknown]
  - Haemoglobin decreased [Unknown]
  - White blood cell count decreased [Unknown]

NARRATIVE: CASE EVENT DATE: 20140904
